FAERS Safety Report 11704001 (Version 1)
Quarter: 2015Q4

REPORT INFORMATION
  Report Type: Spontaneous
  Country: US (occurrence: None)
  Receive Date: 20151105
  Receipt Date: 20151105
  Transmission Date: 20160304
  Serious: Yes (Other)
  Sender: FDA-Public Use
  Company Number: None

PATIENT
  Age: 54 Year
  Sex: Male
  Weight: 86.18 kg

DRUGS (6)
  1. XANAX [Concomitant]
     Active Substance: ALPRAZOLAM
  2. ACYCLOVIR. [Concomitant]
     Active Substance: ACYCLOVIR
  3. ZOLOFT [Concomitant]
     Active Substance: SERTRALINE HYDROCHLORIDE
  4. ENLYTE [Concomitant]
     Active Substance: CALCIUM ASCORBATE\CALCIUM THREONATE\COBALAMIN\COCARBOXYLASE\FERROUS GLUCONATE\FISH OIL\FLAVIN ADENINE DINUCLEOTIDE\FOLIC ACID\LEUCOVORIN CALCIUM\LEVOMEFOLIC ACID\METHYLCOBALAMIN\NADIDE\PYRIDOXAL 5-PHOSPHATE
  5. PROPRANOLOL 60 MG ER [Suspect]
     Active Substance: PROPRANOLOL HYDROCHLORIDE
     Indication: SOCIAL PHOBIA
     Dosage: 1 PILL ONCE DAILY TAKEN BY MOUTH
     Route: 048
     Dates: start: 20151030
  6. NAC [Concomitant]

REACTIONS (29)
  - Influenza like illness [None]
  - Headache [None]
  - Pain [None]
  - Renal pain [None]
  - Dizziness [None]
  - Fatigue [None]
  - Mania [None]
  - Pyrexia [None]
  - Formication [None]
  - Discomfort [None]
  - Agitation [None]
  - Insomnia [None]
  - Suicidal ideation [None]
  - Neck pain [None]
  - Back pain [None]
  - Musculoskeletal stiffness [None]
  - Crying [None]
  - Intervertebral disc protrusion [None]
  - Malaise [None]
  - Increased appetite [None]
  - Vertigo [None]
  - Tremor [None]
  - Anger [None]
  - Tic [None]
  - Feeling drunk [None]
  - Depression [None]
  - Nausea [None]
  - Dyspnoea [None]
  - Gait disturbance [None]

NARRATIVE: CASE EVENT DATE: 20151030
